FAERS Safety Report 15920292 (Version 1)
Quarter: 2019Q1

REPORT INFORMATION
  Report Type: Spontaneous
  Country: US (occurrence: US)
  Receive Date: 20190205
  Receipt Date: 20190205
  Transmission Date: 20190417
  Serious: Yes (Hospitalization, Other)
  Sender: FDA-Public Use
  Company Number: US-MYLANLABS-2019M1010424

PATIENT
  Age: 37 Year
  Sex: Male

DRUGS (5)
  1. CISPLATIN. [Suspect]
     Active Substance: CISPLATIN
     Indication: SOFT TISSUE SARCOMA
     Dosage: 50 MG/M2 ON DAY 1
     Route: 065
     Dates: start: 199506
  2. DOXORUBICIN [Suspect]
     Active Substance: DOXORUBICIN
     Indication: SOFT TISSUE SARCOMA
     Dosage: 55 MILLIGRAM/SQ. METER, MONTHLY
     Route: 065
     Dates: start: 199608
  3. IFOSFAMIDE. [Suspect]
     Active Substance: IFOSFAMIDE
     Indication: SOFT TISSUE SARCOMA
     Dosage: 2.5 G/M2 A DAY FOR 3 DAYS
     Route: 050
     Dates: start: 199506
  4. DACARBAZINE. [Suspect]
     Active Substance: DACARBAZINE
     Indication: SOFT TISSUE SARCOMA
     Dosage: 300 MG/M2 ON DAY 1-3
     Route: 065
     Dates: start: 199506
  5. DOXORUBICIN [Suspect]
     Active Substance: DOXORUBICIN
     Indication: SOFT TISSUE SARCOMA
     Dosage: 65 MG/M2 ON DAY 1
     Route: 065
     Dates: start: 199506

REACTIONS (4)
  - Palmar-plantar erythrodysaesthesia syndrome [Unknown]
  - Febrile neutropenia [Unknown]
  - Mucosal inflammation [Unknown]
  - Drug ineffective [Unknown]
